FAERS Safety Report 5818475-X (Version None)
Quarter: 2008Q3

REPORT INFORMATION
  Report Type: 
  Country: None (occurrence: None)
  Receive Date: 20080722
  Receipt Date: 20080718
  Transmission Date: 20090109
  Serious: Yes (Hospitalization)
  Sender: FDA-Public Use
  Company Number: CA-MERCK-0806CAN00043

PATIENT
  Age: 81 Year
  Sex: Male

DRUGS (3)
  1. JANUVIA [Suspect]
     Route: 048
     Dates: start: 20080507, end: 20080527
  2. [THERAPY UNSPECIFIED] [Concomitant]
     Route: 065
  3. METFORMIN [Concomitant]
     Route: 065

REACTIONS (2)
  - GASTRIC DISORDER [None]
  - HEPATIC ENZYME INCREASED [None]
